FAERS Safety Report 13049460 (Version 1)
Quarter: 2016Q4

REPORT INFORMATION
  Report Type: Spontaneous
  Country: US (occurrence: US)
  Receive Date: 20161221
  Receipt Date: 20161221
  Transmission Date: 20170207
  Serious: Yes (Hospitalization, Other)
  Sender: FDA-Public Use
  Company Number: US-ACCORD-046643

PATIENT
  Age: 31 Year
  Sex: Male

DRUGS (12)
  1. SULFAMETHOXAZOLE/TRIMETHOPRIM [Suspect]
     Active Substance: SULFAMETHOXAZOLE\TRIMETHOPRIM
     Indication: PRODUCT USED FOR UNKNOWN INDICATION
  2. CEFPODOXIME/CEFPODOXIME PROXETIL [Concomitant]
     Indication: INFECTION PROPHYLAXIS
     Route: 048
  3. BUDESONIDE. [Suspect]
     Active Substance: BUDESONIDE
     Indication: ACUTE GRAFT VERSUS HOST DISEASE IN INTESTINE
  4. VORICONAZOLE. [Concomitant]
     Active Substance: VORICONAZOLE
     Indication: ANTIFUNGAL PROPHYLAXIS
     Route: 048
  5. DAPSONE. [Concomitant]
     Active Substance: DAPSONE
     Indication: INFECTION PROPHYLAXIS
  6. VALACYCLOVIR [Suspect]
     Active Substance: VALACYCLOVIR HYDROCHLORIDE
     Indication: INFECTION PROPHYLAXIS
  7. CASPOFUNGIN/CASPOFUNGIN ACETATE [Concomitant]
     Indication: ANTIFUNGAL PROPHYLAXIS
     Route: 042
  8. TACROLIMUS. [Suspect]
     Active Substance: TACROLIMUS
     Indication: ACUTE GRAFT VERSUS HOST DISEASE IN INTESTINE
  9. AMPHOTERICIN B. [Suspect]
     Active Substance: AMPHOTERICIN B
     Indication: PRODUCT USED FOR UNKNOWN INDICATION
     Dosage: ALSO RECEIVED AT 5 MG/KG FOR THREE WEEKS
     Route: 042
  10. FLUCYTOSINE. [Concomitant]
     Active Substance: FLUCYTOSINE
  11. MYCOPHENOLIC ACID. [Suspect]
     Active Substance: MYCOPHENOLIC ACID
     Indication: ACUTE GRAFT VERSUS HOST DISEASE IN INTESTINE
  12. SPIRONOLACTONE. [Suspect]
     Active Substance: SPIRONOLACTONE
     Indication: PRODUCT USED FOR UNKNOWN INDICATION

REACTIONS (8)
  - Acute kidney injury [Not Recovered/Not Resolved]
  - Hepatotoxicity [None]
  - Pneumonia pseudomonal [None]
  - Atypical mycobacterium test positive [None]
  - Azotaemia [None]
  - Disseminated cryptococcosis [Not Recovered/Not Resolved]
  - Portal hypertension [None]
  - Thrombotic microangiopathy [Not Recovered/Not Resolved]
